FAERS Safety Report 9133131 (Version 1)
Quarter: 2013Q1

REPORT INFORMATION
  Report Type: Spontaneous
  Country: FR (occurrence: FR)
  Receive Date: 20130128
  Receipt Date: 20130128
  Transmission Date: 20140127
  Serious: Yes (Hospitalization)
  Sender: FDA-Public Use
  Company Number: FR-ELI_LILLY_AND_COMPANY-FR201301008525

PATIENT
  Sex: Male

DRUGS (4)
  1. ALIMTA [Suspect]
     Indication: SMALL CELL LUNG CANCER
     Dosage: UNK
     Route: 042
     Dates: start: 201206, end: 20120821
  2. ALIMTA [Suspect]
     Dosage: UNK
  3. CISPLATIN [Concomitant]
     Indication: SMALL CELL LUNG CANCER
     Dosage: UNK
     Dates: start: 201206, end: 20120812
  4. CARBOPLATIN [Concomitant]
     Indication: SMALL CELL LUNG CANCER

REACTIONS (3)
  - Renal tubular necrosis [Not Recovered/Not Resolved]
  - Renal failure chronic [Not Recovered/Not Resolved]
  - Off label use [Unknown]
